FAERS Safety Report 10888150 (Version 1)
Quarter: 2015Q1

REPORT INFORMATION
  Report Type: Spontaneous
  Country: US (occurrence: US)
  Receive Date: 20150304
  Receipt Date: 20150304
  Transmission Date: 20150721
  Serious: Yes (Other)
  Sender: FDA-Public Use
  Company Number: US-AMGEN-USASP2013075631

PATIENT
  Age: 77 Year
  Sex: Female

DRUGS (3)
  1. ENBREL [Suspect]
     Active Substance: ETANERCEPT
     Dosage: UNK
     Route: 065
  2. ENBREL [Suspect]
     Active Substance: ETANERCEPT
     Indication: RHEUMATOID ARTHRITIS
     Dosage: 50 MG, QWK
     Route: 065
     Dates: start: 20130515
  3. METHOTREXATE [Suspect]
     Active Substance: METHOTREXATE
     Indication: PRODUCT USED FOR UNKNOWN INDICATION
     Dosage: 10 MG, QWK
     Route: 058
     Dates: start: 1998

REACTIONS (21)
  - Impaired driving ability [Unknown]
  - Headache [Not Recovered/Not Resolved]
  - Nausea [Unknown]
  - Rales [Not Recovered/Not Resolved]
  - Pneumonia [Unknown]
  - Wheezing [Not Recovered/Not Resolved]
  - Paronychia [Recovered/Resolved]
  - Fatigue [Recovered/Resolved]
  - Blood sodium decreased [Not Recovered/Not Resolved]
  - Pollakiuria [Not Recovered/Not Resolved]
  - Blood pressure abnormal [Not Recovered/Not Resolved]
  - Mobility decreased [Unknown]
  - Dizziness [Unknown]
  - Injection site pain [Not Recovered/Not Resolved]
  - Pleural effusion [Not Recovered/Not Resolved]
  - Urinary tract infection [Unknown]
  - Intraocular pressure increased [Unknown]
  - Cataract [Recovered/Resolved]
  - Mental impairment [Recovered/Resolved]
  - Insomnia [Not Recovered/Not Resolved]
  - Confusional state [Recovered/Resolved]

NARRATIVE: CASE EVENT DATE: 2013
